FAERS Safety Report 5622373-4 (Version None)
Quarter: 2008Q1

REPORT INFORMATION
  Report Type: 
  Country: None (occurrence: None)
  Receive Date: 20080211
  Receipt Date: 20080131
  Transmission Date: 20080703
  Serious: Yes (Other)
  Sender: FDA-Public Use
  Company Number: JP-PFIZER INC-2007099104

PATIENT
  Age: 70 Year
  Sex: Female

DRUGS (1)
  1. SULPERAZON [Suspect]
     Route: 042
     Dates: start: 20070101, end: 20070101

REACTIONS (1)
  - ANAPHYLACTIC SHOCK [None]
